FAERS Safety Report 16935256 (Version 1)
Quarter: 2019Q4

REPORT INFORMATION
  Report Type: Spontaneous
  Country: US (occurrence: US)
  Receive Date: 20191018
  Receipt Date: 20191018
  Transmission Date: 20200122
  Serious: Yes (Other)
  Sender: FDA-Public Use
  Company Number: US-ASTRAZENECA-2019SF47680

PATIENT
  Age: 20981 Day
  Sex: Female

DRUGS (1)
  1. ZOMIG [Suspect]
     Active Substance: ZOLMITRIPTAN
     Indication: MIGRAINE
     Dosage: USE 1 SPRAY IN 1 NOSTRIL ONCE AT ONSET OF MIGRAINE. MAY REPEAT ONCE AFTER 2 HOURS IF NEEDED.
     Route: 045

REACTIONS (3)
  - Cognitive disorder [Unknown]
  - Thyroid cancer [Unknown]
  - Speech disorder [Unknown]

NARRATIVE: CASE EVENT DATE: 20191010
